FAERS Safety Report 19073793 (Version 1)
Quarter: 2021Q1

REPORT INFORMATION
  Report Type: Spontaneous
  Country: FR (occurrence: FR)
  Receive Date: 20210330
  Receipt Date: 20210330
  Transmission Date: 20210420
  Serious: Yes (Other)
  Sender: FDA-Public Use
  Company Number: NVSC2021FR065697

PATIENT
  Age: 20 Year
  Sex: Female
  Weight: 56 kg

DRUGS (11)
  1. TRIMEBUTINE [Concomitant]
     Active Substance: TRIMEBUTINE
     Indication: ABDOMINAL PAIN
     Dosage: 200 MG, Q24H
     Route: 042
     Dates: start: 20180519
  2. OXYCODONE [Concomitant]
     Active Substance: OXYCODONE
     Indication: PAIN
     Dosage: 5 MG, Q6H
     Route: 048
     Dates: start: 20180517
  3. CIPROFLOXACINE [Suspect]
     Active Substance: CIPROFLOXACIN
     Indication: CAMPYLOBACTER COLITIS
     Dosage: 1000 MG, QD
     Route: 048
     Dates: start: 20180517
  4. XENETIX [Concomitant]
     Active Substance: IOBITRIDOL
     Indication: SCAN WITH CONTRAST
     Dosage: 110 ML, TOTAL
     Route: 042
     Dates: start: 20180516, end: 20180516
  5. LAMICTAL [Concomitant]
     Active Substance: LAMOTRIGINE
     Indication: EPILEPSY
     Dosage: 1 DF, QD
     Route: 048
  6. SPASFON LYOC [Concomitant]
     Active Substance: PHLOROGLUCINOL
     Indication: ABDOMINAL PAIN
     Dosage: 1500 MG, QD
     Route: 048
     Dates: start: 20180517
  7. CEFTRIAXONE. [Suspect]
     Active Substance: CEFTRIAXONE
     Indication: CAMPYLOBACTER COLITIS
     Dosage: 1 G, TOTAL
     Route: 042
     Dates: start: 20180517, end: 20180517
  8. METRONIDAZOLE. [Concomitant]
     Active Substance: METRONIDAZOLE
     Indication: CAMPYLOBACTER COLITIS
     Dosage: 1500 MG, QD
     Route: 048
     Dates: start: 20180517, end: 20180518
  9. ENOXAPARINE SODIQUE [Concomitant]
     Active Substance: ENOXAPARIN SODIUM
     Indication: CARDIOVASCULAR EVENT PROPHYLAXIS
     Dosage: 4000 IU, Q24H
     Route: 058
     Dates: start: 20180517
  10. VANCOMYCINE [Concomitant]
     Active Substance: VANCOMYCIN
     Indication: CAMPYLOBACTER COLITIS
     Dosage: 500 MG, QD
     Route: 048
     Dates: start: 20180518
  11. PARACETAMOL [Concomitant]
     Active Substance: ACETAMINOPHEN
     Indication: ABDOMINAL PAIN
     Dosage: 1 G, Q6H
     Route: 048
     Dates: start: 20180517

REACTIONS (4)
  - Toxic skin eruption [Recovered/Resolved]
  - Cell death [Recovered/Resolved]
  - Rash maculo-papular [Recovered/Resolved]
  - Gamma-glutamyltransferase increased [Recovered/Resolved]

NARRATIVE: CASE EVENT DATE: 20180519
